FAERS Safety Report 5294954-1 (Version None)
Quarter: 2007Q2

REPORT INFORMATION
  Report Type: 
  Country: None (occurrence: None)
  Receive Date: 20070412
  Receipt Date: 20070406
  Transmission Date: 20071010
  Serious: Yes (Hospitalization)
  Sender: FDA-Public Use
  Company Number: JP-GLAXOSMITHKLINE-B0465813A

PATIENT
  Age: 36 Year
  Sex: Female

DRUGS (1)
  1. NYTOL [Suspect]
     Indication: INSOMNIA
     Dosage: 2TAB AT NIGHT
     Route: 048

REACTIONS (1)
  - URTICARIA GENERALISED [None]
